FAERS Safety Report 4549294-2 (Version None)
Quarter: 2005Q1

REPORT INFORMATION
  Report Type: 
  Country: None (occurrence: None)
  Receive Date: 20050107
  Receipt Date: 20050107
  Transmission Date: 20050727
  Serious: Yes (Life-Threatening, Hospitalization)
  Sender: FDA-Public Use
  Company Number: None

PATIENT
  Age: 56 Year
  Sex: Male
  Weight: 99 kg

DRUGS (11)
  1. CYTOKINE INDUCED KILLER CELLS DERIVED FROM PBMC [Suspect]
     Indication: BLOOD DISORDER
     Dosage: 5 X 10 7 CELLS/KG IV
     Route: 042
     Dates: start: 20041229
  2. CYTOKINE INDUCED KILLER CELLS DERIVED FROM PBMC [Suspect]
     Indication: DISEASE RECURRENCE
     Dosage: 5 X 10 7 CELLS/KG IV
     Route: 042
     Dates: start: 20041229
  3. CYTOKINE INDUCED KILLER CELLS DERIVED FROM PBMC [Suspect]
     Indication: NEOPLASM MALIGNANT
     Dosage: 5 X 10 7 CELLS/KG IV
     Route: 042
     Dates: start: 20041229
  4. VALIUM [Concomitant]
  5. NEURONTIN [Concomitant]
  6. DECADRON [Concomitant]
  7. OXYCONTIN [Concomitant]
  8. CELEXA [Concomitant]
  9. FENTANYL [Concomitant]
  10. CALCIUM AND POTTASIUM SUPPLEMENTS [Concomitant]
  11. ZOMETA [Concomitant]

REACTIONS (7)
  - BRADYCARDIA [None]
  - DYSPNOEA [None]
  - EXTRASYSTOLES [None]
  - HEART RATE IRREGULAR [None]
  - HYPOTENSION [None]
  - INFUSION RELATED REACTION [None]
  - VENTRICULAR EXTRASYSTOLES [None]
